FAERS Safety Report 12313858 (Version 1)
Quarter: 2016Q2

REPORT INFORMATION
  Report Type: Spontaneous
  Country: US (occurrence: US)
  Receive Date: 20160428
  Receipt Date: 20160428
  Transmission Date: 20160815
  Serious: No
  Sender: FDA-Public Use
  Company Number: US-BAUSCH-BL-2015-010495

PATIENT
  Sex: Female
  Weight: 79 kg

DRUGS (8)
  1. HCTZ [Concomitant]
     Active Substance: HYDROCHLOROTHIAZIDE
     Indication: PRODUCT USED FOR UNKNOWN INDICATION
  2. MYRBETRIQ [Concomitant]
     Active Substance: MIRABEGRON
     Indication: PRODUCT USED FOR UNKNOWN INDICATION
  3. WARFARIN [Concomitant]
     Active Substance: WARFARIN
     Indication: PRODUCT USED FOR UNKNOWN INDICATION
  4. ZYCLARA [Suspect]
     Active Substance: IMIQUIMOD
     Indication: PRECANCEROUS SKIN LESION
     Route: 061
     Dates: start: 2015
  5. VICODIN [Concomitant]
     Active Substance: ACETAMINOPHEN\HYDROCODONE BITARTRATE
     Indication: PRODUCT USED FOR UNKNOWN INDICATION
  6. ROBAXIN [Concomitant]
     Active Substance: METHOCARBAMOL
     Indication: PRODUCT USED FOR UNKNOWN INDICATION
  7. METOPROLOL. [Concomitant]
     Active Substance: METOPROLOL
     Indication: PRODUCT USED FOR UNKNOWN INDICATION
  8. ZETIA [Concomitant]
     Active Substance: EZETIMIBE
     Indication: PRODUCT USED FOR UNKNOWN INDICATION

REACTIONS (9)
  - Faeces soft [Not Recovered/Not Resolved]
  - Acne [Not Recovered/Not Resolved]
  - Erythema [Not Recovered/Not Resolved]
  - Muscle spasms [Not Recovered/Not Resolved]
  - Application site pain [Not Recovered/Not Resolved]
  - Skin erosion [Not Recovered/Not Resolved]
  - Scab [Not Recovered/Not Resolved]
  - Mucous stools [Not Recovered/Not Resolved]
  - Skin reaction [Not Recovered/Not Resolved]

NARRATIVE: CASE EVENT DATE: 2015
